FAERS Safety Report 5074603-8 (Version None)
Quarter: 2006Q3

REPORT INFORMATION
  Report Type: 
  Country: None (occurrence: None)
  Receive Date: 20060808
  Receipt Date: 20050824
  Transmission Date: 20061208
  Serious: No
  Sender: FDA-Public Use
  Company Number: US-AMGEN-KDL148003

PATIENT
  Age: 81 Year
  Sex: Male
  Weight: 90.8 kg

DRUGS (8)
  1. PROCRIT [Suspect]
     Indication: RENAL FAILURE CHRONIC
     Route: 058
     Dates: start: 20041015, end: 20050420
  2. NORVASC [Concomitant]
  3. ZOCOR [Concomitant]
  4. SYNTHROID [Concomitant]
  5. TOPROL-XL [Concomitant]
  6. DIOVAN [Concomitant]
  7. LASIX [Concomitant]
  8. KAYEXALATE [Concomitant]

REACTIONS (1)
  - EXFOLIATIVE RASH [None]
